FAERS Safety Report 9371373 (Version 2)
Quarter: 2013Q3

REPORT INFORMATION
  Report Type: Report from Study
  Country: GB (occurrence: GB)
  Receive Date: 20130627
  Receipt Date: 20130927
  Transmission Date: 20140515
  Serious: Yes (Hospitalization, Other)
  Sender: FDA-Public Use
  Company Number: GB-ROCHE-1242132

PATIENT
  Age: 82 Year
  Sex: Male

DRUGS (8)
  1. RANIBIZUMAB [Suspect]
     Indication: PRODUCT USED FOR UNKNOWN INDICATION
     Dosage: LAST DOSE PRIOR TO SAE WAS ON 11/OCT/2012.
     Route: 050
     Dates: start: 2006
  2. DIAZEPAM [Concomitant]
     Route: 065
  3. METOCLOPRAMIDE [Concomitant]
  4. SALBUTAMOL [Concomitant]
  5. LANSOPRAZOLE [Concomitant]
  6. PARACETAMOL [Concomitant]
  7. PROPRANOLOL [Concomitant]
  8. BETAMETHASONE [Concomitant]

REACTIONS (2)
  - Urinary tract infection [Recovered/Resolved]
  - Peroneal nerve palsy [Recovered/Resolved]
